FAERS Safety Report 6380816-5 (Version None)
Quarter: 2009Q3

REPORT INFORMATION
  Report Type: 
  Country: None (occurrence: None)
  Receive Date: 20090929
  Receipt Date: 20090916
  Transmission Date: 20100115
  Serious: Yes (Other)
  Sender: FDA-Public Use
  Company Number: AU-PFIZER INC-2009270072

PATIENT

DRUGS (2)
  1. XANAX [Suspect]
  2. ALCOHOL [Suspect]

REACTIONS (2)
  - AGGRESSION [None]
  - POISONING [None]
